FAERS Safety Report 13359776 (Version 1)
Quarter: 2017Q1

REPORT INFORMATION
  Report Type: Spontaneous
  Country: US (occurrence: US)
  Receive Date: 20170322
  Receipt Date: 20170322
  Transmission Date: 20170429
  Serious: Yes (Hospitalization, Other)
  Sender: FDA-Public Use
  Company Number: US-ELI_LILLY_AND_COMPANY-US201608002746

PATIENT
  Sex: Female

DRUGS (2)
  1. CYMBALTA [Suspect]
     Active Substance: DULOXETINE HYDROCHLORIDE
     Indication: PAIN
     Dosage: UNK, UNKNOWN
     Route: 065
  2. CYMBALTA [Suspect]
     Active Substance: DULOXETINE HYDROCHLORIDE
     Indication: DEPRESSION
     Dosage: 30 MG, QD
     Route: 048
     Dates: end: 20150325

REACTIONS (15)
  - Vomiting [Unknown]
  - Irritability [Unknown]
  - Suicidal ideation [Recovered/Resolved]
  - Dysphoria [Unknown]
  - Agitation [Unknown]
  - Drug withdrawal syndrome [Unknown]
  - Nausea [Unknown]
  - Suicide attempt [Recovered/Resolved]
  - Anxiety [Unknown]
  - Frustration tolerance decreased [Unknown]
  - Diarrhoea [Unknown]
  - Affect lability [Unknown]
  - Emotional disorder [Unknown]
  - Sensory disturbance [Unknown]
  - Paraesthesia [Unknown]
